FAERS Safety Report 9738541 (Version 1)
Quarter: 2013Q4

REPORT INFORMATION
  Report Type: Spontaneous
  Country: FR (occurrence: FR)
  Receive Date: 20131209
  Receipt Date: 20131209
  Transmission Date: 20140711
  Serious: Yes (Other)
  Sender: FDA-Public Use
  Company Number: FR-AMGEN-FRASP2013085568

PATIENT
  Age: 48 Year
  Sex: Female

DRUGS (4)
  1. ENBREL [Suspect]
     Indication: PRODUCT USED FOR UNKNOWN INDICATION
     Dosage: UNK
     Route: 058
     Dates: start: 201306, end: 201307
  2. IMIGRANE                           /01044802/ [Concomitant]
     Dosage: UNK
     Route: 048
  3. AERIUS                             /01398501/ [Concomitant]
     Dosage: UNK
     Route: 048
  4. VENTOLINE                          /00139501/ [Concomitant]
     Indication: ASTHMA
     Dosage: UNK

REACTIONS (1)
  - Asthma [Not Recovered/Not Resolved]
